FAERS Safety Report 10441119 (Version 1)
Quarter: 2014Q3

REPORT INFORMATION
  Report Type: Spontaneous
  Country: US (occurrence: None)
  Receive Date: 20140908
  Receipt Date: 20140908
  Transmission Date: 20150326
  Serious: Yes (Death, Hospitalization)
  Sender: FDA-Public Use
  Company Number: None

PATIENT
  Age: 73 Year
  Sex: Female
  Weight: 113 kg

DRUGS (2)
  1. INVEGA [Suspect]
     Active Substance: PALIPERIDONE
     Indication: SCHIZOAFFECTIVE DISORDER
     Route: 048
     Dates: start: 20140707, end: 20140709
  2. INVEGA [Suspect]
     Active Substance: PALIPERIDONE
     Indication: SCHIZOAFFECTIVE DISORDER
     Dosage: 2 INJECTIONS?WEEKLY?INTO THE MUSCLE
     Route: 030
     Dates: start: 20140707, end: 20140710

REACTIONS (4)
  - Contraindication to medical treatment [None]
  - Drug dispensing error [None]
  - Wrong drug administered [None]
  - Sudden death [None]

NARRATIVE: CASE EVENT DATE: 20140710
